FAERS Safety Report 5470334-0 (Version None)
Quarter: 2007Q3

REPORT INFORMATION
  Report Type: 
  Country: None (occurrence: None)
  Receive Date: 20070925
  Receipt Date: 20070912
  Transmission Date: 20080115
  Serious: Yes (Life-Threatening)
  Sender: FDA-Public Use
  Company Number: S07-FRA-05130-01

PATIENT
  Age: 74 Year
  Sex: Female

DRUGS (4)
  1. ESCITALOPRAM [Suspect]
     Indication: DEPRESSION
     Dosage: 20 MG QD PO
     Route: 048
     Dates: start: 20060901
  2. NOCTAMIDE (LORMETAZEPAM) [Concomitant]
  3. BISOPROLOL FUMARATE [Concomitant]
  4. HYZAAR [Concomitant]

REACTIONS (6)
  - ANOXIA [None]
  - BUNDLE BRANCH BLOCK RIGHT [None]
  - CARDIAC ARREST [None]
  - HYPOKALAEMIA [None]
  - MALAISE [None]
  - MYDRIASIS [None]
